FAERS Safety Report 5563836-X (Version None)
Quarter: 2007Q4

REPORT INFORMATION
  Report Type: 
  Country: None (occurrence: None)
  Receive Date: 20071217
  Receipt Date: 20070830
  Transmission Date: 20080405
  Serious: No
  Sender: FDA-Public Use
  Company Number: US-ASTRAZENECA-2007UW20618

PATIENT
  Age: 76 Year
  Sex: Female
  Weight: 58.1 kg

DRUGS (3)
  1. CRESTOR [Suspect]
     Indication: BLOOD CHOLESTEROL
  2. TOPROL-XL [Concomitant]
  3. LOTENSIN [Concomitant]

REACTIONS (2)
  - INSOMNIA [None]
  - POLLAKIURIA [None]
